FAERS Safety Report 6157931-4 (Version None)
Quarter: 2009Q2

REPORT INFORMATION
  Report Type: 
  Country: None (occurrence: None)
  Receive Date: 20090417
  Receipt Date: 20090410
  Transmission Date: 20091009
  Serious: No
  Sender: FDA-Public Use
  Company Number: US-JNJFOC-20090403193

PATIENT
  Sex: Female
  Weight: 58.51 kg

DRUGS (7)
  1. FENTANYL TRANSDERMAL SYSTEM [Suspect]
     Indication: PAIN
     Route: 062
  2. TRAZODONE HCL [Concomitant]
     Indication: INSOMNIA
     Route: 048
  3. CELEBREX [Concomitant]
     Indication: ARTHRITIS
     Route: 048
  4. LYRICA [Concomitant]
     Indication: NEURALGIA
     Route: 048
  5. LOTREL [Concomitant]
     Indication: BLOOD PRESSURE
     Route: 048
  6. SOMA [Concomitant]
     Indication: MUSCLE SPASMS
     Route: 048
  7. MIDRIN [Concomitant]
     Indication: MIGRAINE
     Route: 048

REACTIONS (3)
  - APPLICATION SITE BURN [None]
  - INAPPROPRIATE SCHEDULE OF DRUG ADMINISTRATION [None]
  - WRONG TECHNIQUE IN DRUG USAGE PROCESS [None]
